FAERS Safety Report 13456238 (Version 2)
Quarter: 2017Q2

REPORT INFORMATION
  Report Type: Report from Study
  Country: TR (occurrence: TR)
  Receive Date: 20170418
  Receipt Date: 20170418
  Transmission Date: 20170830
  Serious: Yes (Other)
  Sender: FDA-Public Use
  Company Number: TR-INGENUS PHARMACEUTICALS NJ, LLC-ING201704-000190

PATIENT
  Age: 29 Year
  Sex: Female

DRUGS (1)
  1. PROBENECID AND COLCHICINE [Suspect]
     Active Substance: COLCHICINE\PROBENECID
     Indication: FAMILIAL MEDITERRANEAN FEVER

REACTIONS (3)
  - Infertility [Recovered/Resolved]
  - Product use in unapproved indication [Unknown]
  - Drug intolerance [Recovered/Resolved]
